FAERS Safety Report 6457579-8 (Version None)
Quarter: 2009Q4

REPORT INFORMATION
  Report Type: 
  Country: None (occurrence: None)
  Receive Date: 20091125
  Receipt Date: 20091119
  Transmission Date: 20100525
  Serious: Yes (Hospitalization)
  Sender: FDA-Public Use
  Company Number: PHEH2009US16388

PATIENT

DRUGS (1)
  1. MYFORTIC [Suspect]

REACTIONS (1)
  - HAEMOPTYSIS [None]
